FAERS Safety Report 10249025 (Version 1)
Quarter: 2014Q2

REPORT INFORMATION
  Report Type: Spontaneous
  Country: US (occurrence: None)
  Receive Date: 20140522
  Receipt Date: 20140522
  Transmission Date: 20141212
  Serious: No
  Sender: FDA-Public Use
  Company Number: 1000065720

PATIENT
  Age: 51 Year
  Sex: Male

DRUGS (4)
  1. TUDORZA PRESSAIR (ACLIDINIUM BROMIDE) (400 MICROGRAM, POWDER) [Suspect]
     Indication: CHRONIC OBSTRUCTIVE PULMONARY DISEASE
     Route: 055
     Dates: start: 20140313
  2. ADVAIR DISKUS [Concomitant]
  3. VENTOLIN HFA (SALBUTAMOL SULFATE) [Concomitant]
  4. ALBUTEROL [Concomitant]

REACTIONS (3)
  - Cough [None]
  - Sensation of foreign body [None]
  - Sneezing [None]
